FAERS Safety Report 7076432-2 (Version None)
Quarter: 2010Q4

REPORT INFORMATION
  Report Type: 
  Country: None (occurrence: None)
  Receive Date: 20101101
  Receipt Date: 20101018
  Transmission Date: 20110411
  Serious: Yes (Other)
  Sender: FDA-Public Use
  Company Number: RU-BAYER-201042593GPV

PATIENT
  Age: 18 Month
  Sex: Male
  Weight: 14 kg

DRUGS (2)
  1. KOGENATE FS [Suspect]
     Indication: FACTOR VIII DEFICIENCY
     Route: 042
     Dates: start: 20100118
  2. KOGENATE FS [Suspect]
     Route: 042
     Dates: start: 20100101

REACTIONS (1)
  - SOFT TISSUE HAEMORRHAGE [None]
